FAERS Safety Report 4497311-0 (Version None)
Quarter: 2004Q3

REPORT INFORMATION
  Report Type: 
  Country: None (occurrence: None)
  Receive Date: 20040927
  Receipt Date: 20040722
  Transmission Date: 20050211
  Serious: No
  Sender: FDA-Public Use
  Company Number: USA040773436

PATIENT
  Age: 46 Year
  Sex: Male

DRUGS (7)
  1. STRATTERA [Suspect]
     Indication: ANXIETY
     Dosage: 80 MG DAY
     Dates: start: 20040401
  2. LISINOPRIL [Concomitant]
  3. LIPITOR [Concomitant]
  4. NEURONTIN [Concomitant]
  5. GEMFIBROZIL [Concomitant]
  6. ASPIRIN [Concomitant]
  7. ADDERALL 10 [Concomitant]

REACTIONS (2)
  - AGITATION [None]
  - ANGER [None]
